FAERS Safety Report 22176920 (Version 1)
Quarter: 2023Q2

REPORT INFORMATION
  Report Type: Spontaneous
  Country: US (occurrence: US)
  Receive Date: 20230405
  Receipt Date: 20230405
  Transmission Date: 20230722
  Serious: Yes (Hospitalization, Other)
  Sender: FDA-Public Use
  Company Number: US-INCYTE CORPORATION-2023IN003326

PATIENT

DRUGS (3)
  1. JAKAFI [Suspect]
     Active Substance: RUXOLITINIB
     Indication: Myeloproliferative neoplasm
     Dosage: 10 MILLIGRAM, QD
     Route: 048
     Dates: start: 202201
  2. INREBIC [Suspect]
     Active Substance: FEDRATINIB HYDROCHLORIDE
     Indication: Myeloproliferative neoplasm
     Route: 065
  3. LACTULOSE [Suspect]
     Active Substance: LACTULOSE
     Indication: Constipation
     Dosage: UNK
     Route: 065

REACTIONS (5)
  - Haemoglobin decreased [Recovering/Resolving]
  - Colitis [Recovering/Resolving]
  - Constipation [Recovering/Resolving]
  - Arthralgia [Recovering/Resolving]
  - Off label use [Unknown]

NARRATIVE: CASE EVENT DATE: 20220101
